FAERS Safety Report 4371499-4 (Version None)
Quarter: 2004Q2

REPORT INFORMATION
  Report Type: 
  Country: None (occurrence: None)
  Receive Date: 20040602
  Receipt Date: 20040521
  Transmission Date: 20050107
  Serious: Yes (Hospitalization)
  Sender: FDA-Public Use
  Company Number: US-JNJFOC-20040502765

PATIENT
  Age: 61 Year
  Sex: Female
  Weight: 45.3597 kg

DRUGS (3)
  1. ELMIRON [Suspect]
     Indication: BLADDER PAIN
     Dosage: 100MG OR 300MG THREE TIMES DAILY
     Dates: start: 20040131, end: 20040216
  2. ROCEPHIN [Suspect]
     Indication: VIRAL INFECTION
  3. PAXIL [Concomitant]

REACTIONS (11)
  - ARTHRALGIA [None]
  - BURNING SENSATION [None]
  - CRYING [None]
  - DEPRESSION [None]
  - MUSCULOSKELETAL STIFFNESS [None]
  - PAIN [None]
  - PYREXIA [None]
  - RASH ERYTHEMATOUS [None]
  - RASH GENERALISED [None]
  - URTICARIA [None]
  - VIRAL INFECTION [None]
